FAERS Safety Report 5920056-4 (Version None)
Quarter: 2008Q4

REPORT INFORMATION
  Report Type: 
  Country: None (occurrence: None)
  Receive Date: 20081014
  Receipt Date: 20080929
  Transmission Date: 20090506
  Serious: Yes (Hospitalization)
  Sender: FDA-Public Use
  Company Number: 2008PV036807

PATIENT
  Age: 55 Year
  Sex: Female
  Weight: 99.7913 kg

DRUGS (16)
  1. SYMLIN [Suspect]
     Indication: TYPE 2 DIABETES MELLITUS
     Dosage: BID; SC
     Route: 058
     Dates: start: 20071201, end: 20080601
  2. METFORMIN HYDROCHLORIDE [Concomitant]
  3. BYETTA [Concomitant]
  4. GLIMEPIRIDE [Concomitant]
  5. CYMBALTA [Concomitant]
  6. DIOVAN HCT [Concomitant]
  7. QUINAPRIL [Concomitant]
  8. IBUPROFEN [Concomitant]
  9. TRAMADOL HCL [Concomitant]
  10. PROVENTIL GENTLEHALER [Concomitant]
  11. PRILOSEC [Concomitant]
  12. DICYCLOMINE [Concomitant]
  13. COLCHICINE [Concomitant]
  14. ALLOPURINOL [Concomitant]
  15. LAXATIVE [Concomitant]
  16. NAPROSYN [Concomitant]

REACTIONS (18)
  - COLITIS [None]
  - CONDITION AGGRAVATED [None]
  - DEPRESSION [None]
  - DRUG HYPERSENSITIVITY [None]
  - FEELING JITTERY [None]
  - GASTROENTERITIS VIRAL [None]
  - GOUT [None]
  - HEPATIC STEATOSIS [None]
  - HYPERKALAEMIA [None]
  - HYPERTENSION [None]
  - HYPERTRIGLYCERIDAEMIA [None]
  - METABOLIC ACIDOSIS [None]
  - NAUSEA [None]
  - NERVOUSNESS [None]
  - NIGHT SWEATS [None]
  - OEDEMA PERIPHERAL [None]
  - TENDONITIS [None]
  - WEIGHT DECREASED [None]
